FAERS Safety Report 15289730 (Version 2)
Quarter: 2018Q4

REPORT INFORMATION
  Report Type: Spontaneous
  Country: US (occurrence: US)
  Receive Date: 20180817
  Receipt Date: 20181106
  Transmission Date: 20190204
  Serious: Yes (Other)
  Sender: FDA-Public Use
  Company Number: US-009507513-1808USA004636

PATIENT
  Age: 68 Year
  Sex: Female

DRUGS (1)
  1. TICE BCG [Suspect]
     Active Substance: BACILLUS CALMETTE-GUERIN SUBSTRAIN TICE LIVE ANTIGEN
     Indication: BLADDER CANCER
     Dosage: UNK
     Route: 043
     Dates: end: 20180625

REACTIONS (6)
  - Pyrexia [Unknown]
  - Bone marrow failure [Unknown]
  - Flank pain [Unknown]
  - Fatigue [Unknown]
  - Renal impairment [Unknown]
  - Anaemia of chronic disease [Unknown]
